FAERS Safety Report 9171338 (Version 8)
Quarter: 2014Q1

REPORT INFORMATION
  Report Type: Report from Study
  Country: DE (occurrence: DE)
  Receive Date: 20130319
  Receipt Date: 20140327
  Transmission Date: 20141002
  Serious: Yes (Life-Threatening, Hospitalization)
  Sender: FDA-Public Use
  Company Number: DE-ROCHE-1170888

PATIENT
  Age: 58 Year
  Sex: Female
  Weight: 91 kg

DRUGS (28)
  1. PERTUZUMAB [Suspect]
     Indication: BREAST CANCER
     Dosage: LOADING DOSE AS PER PROTOCOL
     Route: 042
     Dates: start: 20121106
  2. PERTUZUMAB [Suspect]
     Dosage: MAINTENANCE DOSE
     Route: 042
     Dates: start: 20121128, end: 20121218
  3. PERTUZUMAB [Suspect]
     Route: 042
     Dates: start: 20130109, end: 20130130
  4. PERTUZUMAB [Suspect]
     Route: 042
     Dates: start: 20130227
  5. TRASTUZUMAB [Suspect]
     Indication: BREAST CANCER
     Dosage: LOADING DOSE AS PER PROTOCOL
     Route: 042
     Dates: start: 20121106
  6. TRASTUZUMAB [Suspect]
     Dosage: MAINTENANCE DOSE
     Route: 042
     Dates: start: 20121128, end: 20121218
  7. TRASTUZUMAB [Suspect]
     Route: 042
     Dates: start: 20130109, end: 20130130
  8. TRASTUZUMAB [Suspect]
     Route: 042
     Dates: start: 20130227
  9. VINORELBINE [Suspect]
     Indication: BREAST CANCER
     Dosage: LAST DOSE PRIOR TO SAE :12/DEC/2012
     Route: 042
     Dates: start: 20121106, end: 20121218
  10. VINORELBINE [Suspect]
     Dosage: LAST DOSE PRIOR TO EVENT: 16/JAN/2013
     Route: 042
     Dates: start: 20130109
  11. VINORELBINE [Suspect]
     Dosage: INTERRUPTED ON 30/JAN/2013 DUE TO LEUKOPENIA.
     Route: 042
     Dates: start: 20130127, end: 20130130
  12. VINORELBINE [Suspect]
     Route: 042
     Dates: start: 20130227
  13. METOCLOPRAMID [Concomitant]
     Route: 065
     Dates: start: 20121212
  14. HCTZ [Concomitant]
     Route: 065
     Dates: start: 2002
  15. XYLOMETAZOLINE [Concomitant]
     Dosage: PRN
     Route: 065
     Dates: start: 201208
  16. DEXAMETHASONE [Concomitant]
     Route: 065
     Dates: start: 20121217
  17. KALINOR [Concomitant]
     Route: 065
     Dates: start: 20121205
  18. MAALOXAN [Concomitant]
     Dosage: PRN
     Route: 065
     Dates: start: 20121206
  19. OMEPRAZOL [Concomitant]
     Route: 065
     Dates: start: 20121217
  20. TARGIN [Concomitant]
     Route: 065
     Dates: start: 20121217
  21. MCP AL [Concomitant]
     Dosage: 20 DROPS PRN
     Route: 065
     Dates: start: 20121113
  22. ACICLOVIR [Concomitant]
     Route: 065
     Dates: start: 20130107, end: 20130113
  23. ACICLOVIR [Concomitant]
     Dosage: 1 STRAND PRN
     Route: 065
     Dates: start: 20130107
  24. KEVATRIL [Concomitant]
     Route: 065
     Dates: start: 20130122, end: 20130422
  25. CIPROFLOXACIN [Concomitant]
     Route: 065
     Dates: start: 20130122, end: 20130127
  26. PARACETAMOL [Concomitant]
     Route: 065
     Dates: start: 20121107, end: 20130502
  27. METIMAZOL [Concomitant]
     Route: 065
     Dates: start: 20121024, end: 20130422
  28. IBUPROFEN [Concomitant]

REACTIONS (3)
  - Influenza [Recovered/Resolved]
  - Neutropenia [Recovered/Resolved]
  - Leukopenia [Recovered/Resolved]
